FAERS Safety Report 11489219 (Version 3)
Quarter: 2015Q3

REPORT INFORMATION
  Report Type: Report from Study
  Country: VE (occurrence: VE)
  Receive Date: 20150909
  Receipt Date: 20150918
  Transmission Date: 20151125
  Serious: Yes (Hospitalization, Other)
  Sender: FDA-Public Use
  Company Number: PHHY2015VE108193

PATIENT
  Sex: Female

DRUGS (9)
  1. FORADIL [Suspect]
     Active Substance: FORMOTEROL FUMARATE
     Indication: CHRONIC OBSTRUCTIVE PULMONARY DISEASE
     Dosage: 400 UG, Q12H
     Route: 055
     Dates: start: 2015
  2. MIFLONIDE [Suspect]
     Active Substance: BUDESONIDE
     Indication: CHRONIC OBSTRUCTIVE PULMONARY DISEASE
     Dosage: 12 UG, Q12H
     Route: 055
     Dates: start: 2015
  3. TEOFILINA [Concomitant]
     Indication: ASTHMA
     Dosage: 125 MG, Q12H
     Route: 065
     Dates: start: 2005
  4. FORADIL [Suspect]
     Active Substance: FORMOTEROL FUMARATE
     Indication: ASTHMA
     Dosage: 400 UG, QD
     Route: 065
     Dates: start: 2015
  5. SPIRIVA [Concomitant]
     Active Substance: TIOTROPIUM BROMIDE MONOHYDRATE
     Indication: ASTHMA
     Dosage: UNK UNK, QD
     Route: 065
     Dates: start: 201507
  6. XOLAIR [Suspect]
     Active Substance: OMALIZUMAB
     Indication: ASTHMA
     Dosage: 150 MG, QMO
     Route: 058
     Dates: start: 20150318
  7. MIFLONIDE [Suspect]
     Active Substance: BUDESONIDE
     Indication: ASTHMA
     Dosage: 24 UG, QD
     Route: 065
     Dates: start: 2015
  8. XOLAIR [Suspect]
     Active Substance: OMALIZUMAB
     Dosage: 150 MG, QD
     Route: 065
     Dates: start: 2015
  9. XARELTO [Concomitant]
     Active Substance: RIVAROXABAN
     Indication: OBSTRUCTIVE AIRWAYS DISORDER
     Dosage: 30 MG, QD
     Route: 065
     Dates: start: 20150804

REACTIONS (5)
  - Chronic obstructive pulmonary disease [Unknown]
  - Asthma [Unknown]
  - Pneumonia [Recovering/Resolving]
  - Asphyxia [Recovering/Resolving]
  - Respiratory tract infection [Recovering/Resolving]
